FAERS Safety Report 25057078 (Version 1)
Quarter: 2025Q1

REPORT INFORMATION
  Report Type: Spontaneous
  Country: US (occurrence: US)
  Receive Date: 20250310
  Receipt Date: 20250310
  Transmission Date: 20250409
  Serious: Yes (Disabling, Other)
  Sender: UCB
  Company Number: US-UCBSA-2025013283

PATIENT
  Sex: Female
  Weight: 145.81 kg

DRUGS (1)
  1. CIMZIA [Suspect]
     Active Substance: CERTOLIZUMAB PEGOL
     Indication: Product used for unknown indication
     Dosage: 200 MILLIGRAM, EV 2 WEEKS(QOW)
     Route: 058

REACTIONS (4)
  - Fall [Unknown]
  - Ankle fracture [Unknown]
  - Upper limb fracture [Unknown]
  - Mobility decreased [Unknown]
